FAERS Safety Report 13869715 (Version 6)
Quarter: 2019Q3

REPORT INFORMATION
  Report Type: Report from Study
  Country: DE (occurrence: DE)
  Receive Date: 20170815
  Receipt Date: 20190926
  Transmission Date: 20191004
  Serious: Yes (Hospitalization)
  Sender: FDA-Public Use
  Company Number: PHHO2017DE010130

PATIENT
  Age: 65 Year
  Sex: Female
  Weight: 124 kg

DRUGS (23)
  1. ECURAL [Concomitant]
     Active Substance: MOMETASONE
     Indication: ECZEMA
     Dosage: UNK
     Route: 065
     Dates: start: 20150407
  2. IBUPROFEN. [Concomitant]
     Active Substance: IBUPROFEN
     Indication: ARTHRALGIA
     Dosage: UNK (400 MG)
     Route: 065
     Dates: start: 20140620, end: 20140729
  3. INFLANEFRAN [Concomitant]
     Active Substance: PREDNISOLONE ACETATE
     Indication: UVEITIS
     Dosage: UNK (GTT), QH
     Route: 047
     Dates: start: 20130827
  4. CIPROFLOXACIN. [Concomitant]
     Active Substance: CIPROFLOXACIN
     Dosage: 500 MG, QD
     Route: 048
     Dates: start: 20170615, end: 20170619
  5. PANTOPRAZOLE [Concomitant]
     Active Substance: PANTOPRAZOLE
     Indication: PROPHYLAXIS
     Dosage: UNK (40 MG)
     Route: 065
  6. CANDESARTAN. [Concomitant]
     Active Substance: CANDESARTAN
     Indication: HYPERTENSION
     Dosage: UNK
     Route: 065
  7. CIPROFLOXACIN. [Concomitant]
     Active Substance: CIPROFLOXACIN
     Dosage: UNK (400 MG)
     Route: 065
     Dates: start: 20160609, end: 20160614
  8. VITAMIN D3 [Concomitant]
     Active Substance: CHOLECALCIFEROL
     Indication: PROPHYLAXIS
     Dosage: UNK (500 MG)
     Route: 065
  9. IBUPROFEN. [Concomitant]
     Active Substance: IBUPROFEN
     Indication: URINARY TRACT INFECTION
     Dosage: UNK (600 MG)
     Route: 065
     Dates: start: 20160511, end: 20160513
  10. HYDROCORTISONE. [Concomitant]
     Active Substance: HYDROCORTISONE
     Indication: UVEITIS
     Dosage: UNK (MG), UNK
     Route: 047
     Dates: start: 20130827
  11. METFORMIN [Concomitant]
     Active Substance: METFORMIN HYDROCHLORIDE
     Indication: TYPE 2 DIABETES MELLITUS
     Dosage: UNK (500 MG)
     Route: 065
     Dates: start: 20150801
  12. DABRAFENIB [Suspect]
     Active Substance: DABRAFENIB
     Indication: METASTATIC MALIGNANT MELANOMA
     Dosage: 300 MG, UNK
     Route: 048
     Dates: start: 20130408, end: 20170704
  13. CIPROFLOXACIN. [Concomitant]
     Active Substance: CIPROFLOXACIN
     Indication: URINARY TRACT INFECTION
     Dosage: 400 G, QID
     Route: 048
     Dates: start: 20160122, end: 20160129
  14. VOTUM [Concomitant]
     Indication: HYPERTENSION
     Dosage: UNK
     Route: 065
  15. BORO-SCOPOL [Concomitant]
     Indication: UVEITIS
     Dosage: UNK (MG), BID
     Route: 047
     Dates: start: 20130827
  16. ECURAL [Concomitant]
     Active Substance: MOMETASONE
     Indication: RASH
     Dosage: 1 FTU, PRN
     Route: 065
     Dates: start: 20130502
  17. IBUPROFEN. [Concomitant]
     Active Substance: IBUPROFEN
     Indication: PYREXIA
     Dosage: 400 MG, ONE
     Route: 048
     Dates: start: 20150731, end: 20150731
  18. PREDNICARBATE. [Concomitant]
     Active Substance: PREDNICARBATE
     Indication: GRANULOMA ANNULARE
     Dosage: UNK (2.5 MG/G)
     Route: 065
     Dates: start: 20160712, end: 20161024
  19. TRAMETINIB [Suspect]
     Active Substance: TRAMETINIB
     Indication: METASTATIC MALIGNANT MELANOMA
     Dosage: 2 MG, UNK
     Route: 048
     Dates: start: 20130408, end: 20170704
  20. IBUPROFEN. [Concomitant]
     Active Substance: IBUPROFEN
     Indication: CHILLS
     Dosage: 400 MG, PRN
     Route: 048
     Dates: start: 20130506, end: 20130508
  21. VALCYTE [Concomitant]
     Active Substance: VALGANCICLOVIR HYDROCHLORIDE
     Indication: EPSTEIN-BARR VIRUS INFECTION
     Dosage: UNK
     Route: 065
     Dates: start: 20130905
  22. CEFUROXIME. [Concomitant]
     Active Substance: CEFUROXIME
     Indication: CYSTITIS
     Dosage: UNK
     Route: 065
     Dates: start: 20140923
  23. IBUFLAM [Concomitant]
     Indication: PYREXIA
     Dosage: 800 MG, TID
     Route: 048
     Dates: start: 20150215, end: 20150217

REACTIONS (1)
  - Chronic cutaneous lupus erythematosus [Recovered/Resolved]

NARRATIVE: CASE EVENT DATE: 20170704
